FAERS Safety Report 13622857 (Version 1)
Quarter: 2017Q2

REPORT INFORMATION
  Report Type: Spontaneous
  Country: IT (occurrence: IT)
  Receive Date: 20170607
  Receipt Date: 20170607
  Transmission Date: 20170830
  Serious: Yes (Death, Other)
  Sender: FDA-Public Use
  Company Number: PHHY2017IT078936

PATIENT
  Age: 58 Year
  Sex: Male

DRUGS (8)
  1. DOXORUBICIN [Suspect]
     Active Substance: DOXORUBICIN
     Indication: MALIGNANT NEOPLASM PROGRESSION
     Dosage: 70 MG/M2, QMO
     Route: 013
     Dates: start: 201201
  2. FLUOROURACIL. [Suspect]
     Active Substance: FLUOROURACIL
     Indication: SWEAT GLAND TUMOUR
     Dosage: 200 MG/M2, QD
     Route: 042
  3. CISPLATIN. [Suspect]
     Active Substance: CISPLATIN
     Dosage: 5 MG/M2, UNK
     Route: 042
     Dates: start: 200810
  4. ETOPOSIDE. [Suspect]
     Active Substance: ETOPOSIDE
     Indication: MALIGNANT NEOPLASM PROGRESSION
     Dosage: 50 MG, QD
     Route: 048
     Dates: start: 201112
  5. CISPLATIN. [Suspect]
     Active Substance: CISPLATIN
     Indication: SWEAT GLAND TUMOUR
     Dosage: 20 MG/M2, QW
     Route: 042
  6. CISPLATIN. [Suspect]
     Active Substance: CISPLATIN
     Dosage: 20 UNK, UNK
     Route: 065
     Dates: start: 201109
  7. DOCETAXEL. [Suspect]
     Active Substance: DOCETAXEL
     Indication: SWEAT GLAND TUMOUR
     Dosage: 20 MG/M2, QW
     Route: 042
  8. DOXORUBICIN [Suspect]
     Active Substance: DOXORUBICIN
     Dosage: 70 MG/M2, QMO
     Route: 013
     Dates: start: 201202

REACTIONS (5)
  - Hypersensitivity [Unknown]
  - Malignant neoplasm progression [Fatal]
  - Haemorrhage [Fatal]
  - Thrombocytopenia [Unknown]
  - Disease recurrence [Fatal]

NARRATIVE: CASE EVENT DATE: 200808
